FAERS Safety Report 19959757 (Version 1)
Quarter: 2021Q4

REPORT INFORMATION
  Report Type: Spontaneous
  Country: US (occurrence: US)
  Receive Date: 20211014
  Receipt Date: 20211014
  Transmission Date: 20220303
  Serious: Yes (Other)
  Sender: FDA-Public Use
  Company Number: None

PATIENT
  Age: 65 Year
  Sex: Male
  Weight: 80.3 kg

DRUGS (2)
  1. DEVICE [Suspect]
     Active Substance: DEVICE
  2. HEPARIN [Suspect]
     Active Substance: HEPARIN SODIUM

REACTIONS (1)
  - Incorrect drug administration rate [None]

NARRATIVE: CASE EVENT DATE: 20211012
